FAERS Safety Report 7304191-4 (Version None)
Quarter: 2011Q1

REPORT INFORMATION
  Report Type: 
  Country: None (occurrence: None)
  Receive Date: 20110221
  Receipt Date: 20110216
  Transmission Date: 20110831
  Serious: Yes (Other)
  Sender: FDA-Public Use
  Company Number: CA-BAYER-2011-015126

PATIENT
  Age: 28 Year
  Sex: Female
  Weight: 91 kg

DRUGS (1)
  1. YAZ [Suspect]
     Dosage: 1 DF, QD
     Route: 048

REACTIONS (8)
  - NAUSEA [None]
  - DIZZINESS [None]
  - BREAST PAIN [None]
  - DYSPNOEA [None]
  - HEADACHE [None]
  - PAIN IN EXTREMITY [None]
  - VAGINAL HAEMORRHAGE [None]
  - ABDOMINAL PAIN [None]
